FAERS Safety Report 8482689-3 (Version None)
Quarter: 2012Q3

REPORT INFORMATION
  Report Type: 
  Country: None (occurrence: None)
  Receive Date: 20120702
  Receipt Date: 20120629
  Transmission Date: 20120928
  Serious: Yes (Hospitalization, Other)
  Sender: FDA-Public Use
  Company Number: US-MERCK-1111USA03155

PATIENT
  Age: 70 Year
  Sex: Female
  Weight: 85 kg

DRUGS (17)
  1. LANSOPRAZOLE [Concomitant]
     Route: 065
     Dates: start: 19960101
  2. PRILOSEC [Concomitant]
     Route: 048
  3. MAGNESIA [MILK OF] [Concomitant]
     Route: 065
  4. FOSAMAX [Suspect]
     Indication: OSTEOPOROSIS
     Route: 048
     Dates: start: 19960601
  5. DILTIAZEM HYDROCHLORIDE [Concomitant]
     Indication: HYPERTENSION
     Route: 065
  6. PRAVACHOL [Concomitant]
     Indication: HYPERLIPIDAEMIA
     Route: 065
  7. ESTROGENS (UNSPECIFIED) [Concomitant]
     Indication: MENOPAUSAL SYMPTOMS
     Route: 065
  8. CARDIZEM CD [Concomitant]
     Route: 065
  9. PREMARIN [Concomitant]
     Route: 065
  10. HORMONES (UNSPECIFIED) [Concomitant]
     Route: 065
     Dates: start: 19720101, end: 20091004
  11. ZOCOR [Concomitant]
     Indication: HYPERLIPIDAEMIA
     Route: 048
  12. FOSAMAX [Suspect]
     Route: 048
     Dates: end: 20100101
  13. CALCIUM (UNSPECIFIED) [Concomitant]
     Indication: OSTEOPOROSIS
     Route: 065
  14. TOPROL-XL [Concomitant]
     Indication: HYPERTENSION
     Route: 065
  15. CATAPRES-TTS-1 [Concomitant]
     Route: 061
  16. CLARITIN-D [Concomitant]
     Indication: HYPERSENSITIVITY
     Route: 065
  17. METAMUCIL-2 [Concomitant]
     Route: 065

REACTIONS (57)
  - TOOTH INFECTION [None]
  - POLLAKIURIA [None]
  - PNEUMONITIS [None]
  - PALPITATIONS [None]
  - OSTEONECROSIS [None]
  - CHEST PAIN [None]
  - NASAL CONGESTION [None]
  - HYPERTROPHIC CARDIOMYOPATHY [None]
  - HOT FLUSH [None]
  - TOOTH DISORDER [None]
  - TENDONITIS [None]
  - SEBORRHOEIC KERATOSIS [None]
  - BLADDER PROLAPSE [None]
  - AORTIC BRUIT [None]
  - ANAEMIA [None]
  - OSTEOARTHRITIS [None]
  - CARDIAC MURMUR [None]
  - ECZEMA NUMMULAR [None]
  - DIZZINESS [None]
  - RETINAL DETACHMENT [None]
  - FOOT DEFORMITY [None]
  - OSTEOPENIA [None]
  - NOCTURIA [None]
  - HAEMORRHOIDS [None]
  - CORONARY ARTERY DISEASE [None]
  - EXOSTOSIS [None]
  - FEMUR FRACTURE [None]
  - OVERDOSE [None]
  - BRONCHITIS [None]
  - CONTUSION [None]
  - CYSTOCELE [None]
  - FALL [None]
  - DEVICE MALFUNCTION [None]
  - RADIATION SKIN INJURY [None]
  - DENTAL PROSTHESIS USER [None]
  - LUNG NEOPLASM [None]
  - TENDON DISORDER [None]
  - VERTIGO [None]
  - FRACTURE DELAYED UNION [None]
  - CONSTIPATION [None]
  - SPINDLE CELL SARCOMA [None]
  - ABDOMINAL ADHESIONS [None]
  - ADVERSE EVENT [None]
  - GASTROOESOPHAGEAL REFLUX DISEASE [None]
  - MYOCARDIAL INFARCTION [None]
  - ANXIETY [None]
  - JAW DISORDER [None]
  - HYPOTHYROIDISM [None]
  - OESOPHAGEAL STENOSIS [None]
  - HEART RATE INCREASED [None]
  - GASTROENTERITIS VIRAL [None]
  - CATARACT [None]
  - NEUROMA [None]
  - LUMBAR SPINAL STENOSIS [None]
  - PARAESTHESIA [None]
  - ANGIOPATHY [None]
  - URINARY TRACT INFECTION [None]
